FAERS Safety Report 15387513 (Version 1)
Quarter: 2018Q3

REPORT INFORMATION
  Report Type: Report from Study
  Country: CO (occurrence: CO)
  Receive Date: 20180914
  Receipt Date: 20180914
  Transmission Date: 20181010
  Serious: Yes (Hospitalization, Other)
  Sender: FDA-Public Use
  Company Number: PHHY2018CO059767

PATIENT
  Age: 57 Year
  Sex: Female
  Weight: 52 kg

DRUGS (12)
  1. SPIRIVA [Concomitant]
     Active Substance: TIOTROPIUM BROMIDE MONOHYDRATE
     Indication: PRODUCT USED FOR UNKNOWN INDICATION
     Dosage: 2 DF, QD
     Route: 048
     Dates: start: 2015
  2. SYMBICORT [Concomitant]
     Active Substance: BUDESONIDE\FORMOTEROL FUMARATE DIHYDRATE
     Dosage: 320 OT, UNK
     Route: 048
     Dates: start: 2016
  3. XOLAIR [Suspect]
     Active Substance: OMALIZUMAB
     Dosage: 2 DF (300 MG), QMO
     Route: 058
     Dates: start: 201808
  4. BECLOMETASONE [Concomitant]
     Active Substance: BECLOMETHASONE DIPROPIONATE
     Indication: PRODUCT USED FOR UNKNOWN INDICATION
     Dosage: 2 DF (2 PUFF IN EACH NOSTRIL) Q12H
     Route: 045
     Dates: start: 20180830
  5. MONTELUKAST SODIUM. [Suspect]
     Active Substance: MONTELUKAST SODIUM
     Indication: PRODUCT USED FOR UNKNOWN INDICATION
     Dosage: 10 MG, Q24H (STARTED MORE 10 YEARS AGO)
     Route: 048
  6. LORATADINE. [Concomitant]
     Active Substance: LORATADINE
     Indication: PRODUCT USED FOR UNKNOWN INDICATION
     Dosage: 10 MG, Q24H
     Route: 048
     Dates: start: 20180830
  7. XOLAIR [Suspect]
     Active Substance: OMALIZUMAB
     Indication: PRODUCT USED FOR UNKNOWN INDICATION
     Dosage: 150 MG, EVERY 15 DAYS
     Route: 058
     Dates: start: 20171130
  8. XOLAIR [Suspect]
     Active Substance: OMALIZUMAB
     Dosage: 150 MG, EVERY 15 DAYS
     Route: 058
     Dates: start: 201712
  9. XOLAIR [Suspect]
     Active Substance: OMALIZUMAB
     Dosage: 2 DF (300 MG), QMO
     Route: 058
     Dates: end: 20180407
  10. SYMBICORT [Concomitant]
     Active Substance: BUDESONIDE\FORMOTEROL FUMARATE DIHYDRATE
     Indication: PRODUCT USED FOR UNKNOWN INDICATION
     Dosage: 160 OT, UNK
     Route: 048
     Dates: start: 2016
  11. OXYGEN. [Concomitant]
     Active Substance: OXYGEN
     Indication: PRODUCT USED FOR UNKNOWN INDICATION
     Dosage: 2 L, 16 HOURS DAILY
     Route: 045
     Dates: start: 201605
  12. BERODUAL [Concomitant]
     Active Substance: FENOTEROL HYDROBROMIDE\IPRATROPIUM BROMIDE
     Indication: PRODUCT USED FOR UNKNOWN INDICATION
     Dosage: 02505 UG (20 DROPS IN3 CC) Q8H ( NEBULIZATION STARTED MORE THAN 10 YEARS AGO
     Route: 050

REACTIONS (13)
  - Nasopharyngitis [Not Recovered/Not Resolved]
  - Erythema [Unknown]
  - Weight increased [Recovering/Resolving]
  - Influenza [Not Recovered/Not Resolved]
  - Urticaria [Unknown]
  - Feeling abnormal [Not Recovered/Not Resolved]
  - Asthmatic crisis [Not Recovered/Not Resolved]
  - Sneezing [Unknown]
  - Productive cough [Unknown]
  - Obstruction [Not Recovered/Not Resolved]
  - Upper-airway cough syndrome [Unknown]
  - Choking [Not Recovered/Not Resolved]
  - Pruritus [Unknown]

NARRATIVE: CASE EVENT DATE: 20180415
